FAERS Safety Report 9706894 (Version 5)
Quarter: 2015Q2

REPORT INFORMATION
  Report Type: Spontaneous
  Country: US (occurrence: US)
  Receive Date: 20131125
  Receipt Date: 20150518
  Transmission Date: 20150821
  Serious: Yes (Hospitalization, Other)
  Sender: FDA-Public Use
  Company Number: US-009507513-1311USA007334

PATIENT
  Sex: Female
  Weight: 113.83 kg

DRUGS (3)
  1. FOSAMAX [Suspect]
     Active Substance: ALENDRONATE SODIUM
     Indication: OSTEOPOROSIS
     Dosage: 10 MG, UNK
     Route: 048
     Dates: start: 199706, end: 200302
  2. FOSAMAX [Suspect]
     Active Substance: ALENDRONATE SODIUM
     Dosage: 70 MG, UNK
     Route: 048
     Dates: start: 20030214, end: 201001
  3. ALENDRONATE SODIUM. [Suspect]
     Active Substance: ALENDRONATE SODIUM
     Dosage: 70 MG, UNK
     Dates: start: 20090105, end: 20090415

REACTIONS (24)
  - Femur fracture [Unknown]
  - Open reduction of fracture [Unknown]
  - Impaired healing [Unknown]
  - Bursitis [Unknown]
  - Skeletal injury [Unknown]
  - Thrombocytopenia [Unknown]
  - Gastric bypass [Unknown]
  - Postoperative wound infection [Unknown]
  - Depression [Unknown]
  - Arthritis [Unknown]
  - Tinnitus [Unknown]
  - Anxiety [Unknown]
  - Haemorrhagic anaemia [Unknown]
  - Hypertension [Unknown]
  - Asthma [Unknown]
  - Medical device complication [Unknown]
  - Exostosis [Unknown]
  - Restless legs syndrome [Unknown]
  - Femur fracture [Unknown]
  - Wound dehiscence [Unknown]
  - Hysterectomy [Unknown]
  - Constipation [Unknown]
  - Depression [Unknown]
  - Arthritis [Unknown]

NARRATIVE: CASE EVENT DATE: 2000
